FAERS Safety Report 9780772 (Version 1)
Quarter: 2013Q4

REPORT INFORMATION
  Report Type: Spontaneous
  Country: NL (occurrence: NL)
  Receive Date: 20131224
  Receipt Date: 20131224
  Transmission Date: 20140711
  Serious: Yes (Death)
  Sender: FDA-Public Use
  Company Number: NL-AMGEN-NLDSP2013089784

PATIENT
  Age: 63 Year
  Sex: Female

DRUGS (9)
  1. XGEVA [Suspect]
     Indication: PRODUCT USED FOR UNKNOWN INDICATION
     Dosage: UNK UNK, Q4WK
     Route: 065
     Dates: start: 20130925
  2. TRAMADOL [Concomitant]
  3. EUTHYROX [Concomitant]
  4. PRAVASTATINE [Concomitant]
  5. COAPROVEL [Concomitant]
  6. FOLIUMZUUR [Concomitant]
  7. HYDROCOBAMINE [Concomitant]
  8. MOVICOLON [Concomitant]
  9. EMEND                              /01627301/ [Concomitant]

REACTIONS (1)
  - Death [Fatal]
